FAERS Safety Report 19972852 (Version 5)
Quarter: 2021Q4

REPORT INFORMATION
  Report Type: Spontaneous
  Country: US (occurrence: US)
  Receive Date: 20211020
  Receipt Date: 20211201
  Transmission Date: 20220303
  Serious: No
  Sender: FDA-Public Use
  Company Number: US-SA-SAC20211015000810

PATIENT
  Age: 29 Year
  Sex: Female

DRUGS (2)
  1. DUPIXENT [Suspect]
     Active Substance: DUPILUMAB
     Indication: Dermatitis atopic
     Dosage: 600 MG, 1X
     Route: 058
     Dates: start: 20211008, end: 20211008
  2. DUPIXENT [Suspect]
     Active Substance: DUPILUMAB
     Indication: Asthma
     Dosage: 300 MG, QOW
     Route: 058
     Dates: start: 202110

REACTIONS (17)
  - Pruritus [Unknown]
  - Eye pain [Unknown]
  - Pain [Unknown]
  - Injection site mass [Recovered/Resolved]
  - Injection site bruising [Unknown]
  - Injection site discolouration [Unknown]
  - Dizziness [Unknown]
  - Fatigue [Unknown]
  - Muscular weakness [Unknown]
  - Foreign body sensation in eyes [Unknown]
  - Nausea [Unknown]
  - Dyspnoea [Unknown]
  - Paraesthesia [Unknown]
  - Urticaria [Unknown]
  - Arthralgia [Unknown]
  - Eye pruritus [Unknown]
  - Palpitations [Unknown]

NARRATIVE: CASE EVENT DATE: 20210101
